FAERS Safety Report 6207992-9 (Version None)
Quarter: 2009Q2

REPORT INFORMATION
  Report Type: 
  Country: None (occurrence: None)
  Receive Date: 20090529
  Receipt Date: 20090226
  Transmission Date: 20091009
  Serious: No
  Sender: FDA-Public Use
  Company Number: A0770713A

PATIENT
  Age: 73 Year
  Sex: Female

DRUGS (6)
  1. VENTOLIN [Suspect]
     Indication: ASTHMA
     Dosage: 3PUFF SIX TIMES PER DAY
     Route: 055
     Dates: start: 20090101
  2. VERAPAMIL [Concomitant]
  3. LASIX [Concomitant]
  4. LESCOL [Concomitant]
  5. LISINOPRIL [Concomitant]
  6. FLOVENT [Concomitant]

REACTIONS (2)
  - EPISTAXIS [None]
  - OVERDOSE [None]
